FAERS Safety Report 10494247 (Version 1)
Quarter: 2014Q4

REPORT INFORMATION
  Report Type: Spontaneous
  Country: US (occurrence: None)
  Receive Date: 20141002
  Receipt Date: 20141002
  Transmission Date: 20150528
  Serious: No
  Sender: FDA-Public Use
  Company Number: None

PATIENT
  Age: 41 Year
  Sex: Female

DRUGS (1)
  1. AUBAGIO [Suspect]
     Active Substance: TERIFLUNOMIDE
     Indication: MULTIPLE SCLEROSIS
     Dosage: 14MG FOR 1 MONTH THEN 7 ?ORAL ?DAILY
     Route: 048
     Dates: start: 20140616, end: 20140916

REACTIONS (1)
  - Nausea [None]

NARRATIVE: CASE EVENT DATE: 20140702
